FAERS Safety Report 9798362 (Version 3)
Quarter: 2014Q2

REPORT INFORMATION
  Report Type: Spontaneous
  Country: ES (occurrence: None)
  Receive Date: 20131231
  Receipt Date: 20140513
  Transmission Date: 20141212
  Serious: Yes (Hospitalization)
  Sender: FDA-Public Use
  Company Number: BTG00098

PATIENT
  Age: 2 Year
  Sex: Male

DRUGS (3)
  1. VORAXAZE (GLUCARPIDASE) POWDER FOR SOLUTION [Suspect]
     Indication: TOXICITY TO VARIOUS AGENTS
  2. METHOTREXATE (METHOTREXATE SODIUM) [Suspect]
     Indication: PRODUCT USED FOR UNKNOWN INDICATION
     Dates: start: 20120112
  3. FOLINIC ACID [Concomitant]

REACTIONS (4)
  - Drug effect delayed [None]
  - Aspartate aminotransferase increased [None]
  - Alanine aminotransferase increased [None]
  - Drug level increased [None]
